FAERS Safety Report 7769860-0 (Version None)
Quarter: 2011Q3

REPORT INFORMATION
  Report Type: 
  Country: None (occurrence: None)
  Receive Date: 20110922
  Receipt Date: 20101229
  Transmission Date: 20111222
  Serious: No
  Sender: FDA-Public Use
  Company Number: US-ASTRAZENECA-2010SE61323

PATIENT
  Age: 35 Year
  Sex: Male
  Weight: 81.6 kg

DRUGS (4)
  1. BENICAR [Concomitant]
     Indication: BLOOD PRESSURE MANAGEMENT
  2. GEODON [Concomitant]
  3. ANOTHER MEDICATION [Concomitant]
  4. SEROQUEL XR [Suspect]
     Indication: BIPOLAR DISORDER
     Route: 048
     Dates: start: 20050101, end: 20101201

REACTIONS (5)
  - DRUG DOSE OMISSION [None]
  - TREMOR [None]
  - INSOMNIA [None]
  - NERVOUSNESS [None]
  - FATIGUE [None]
